FAERS Safety Report 10904637 (Version 1)
Quarter: 2015Q1

REPORT INFORMATION
  Report Type: Spontaneous
  Country: US (occurrence: None)
  Receive Date: 20150107
  Receipt Date: 20150107
  Transmission Date: 20150721
  Serious: No
  Sender: FDA-Public Use
  Company Number: 2014TUS013283

PATIENT
  Age: 5 Decade
  Sex: Male

DRUGS (1)
  1. CONTRAVE [Suspect]
     Active Substance: BUPROPION HYDROCHLORIDE\NALTREXONE HYDROCHLORIDE
     Indication: WEIGHT CONTROL
     Dosage: 2 TABLET
     Route: 048
     Dates: start: 20141001

REACTIONS (3)
  - Vomiting [None]
  - Blood pressure systolic increased [None]
  - Inappropriate schedule of drug administration [None]
